FAERS Safety Report 9476627 (Version 1)
Quarter: 2013Q3

REPORT INFORMATION
  Report Type: Spontaneous
  Country: ES (occurrence: ES)
  Receive Date: 20130826
  Receipt Date: 20130826
  Transmission Date: 20140515
  Serious: Yes (Hospitalization)
  Sender: FDA-Public Use
  Company Number: PHHY2013ES090294

PATIENT
  Age: 61 Year
  Sex: Female

DRUGS (1)
  1. MIRTAZAPINE [Suspect]
     Indication: MAJOR DEPRESSION
     Dosage: 15 MG, AT NIGHT

REACTIONS (4)
  - Pleurothotonus [Recovered/Resolved]
  - Dystonia [Recovered/Resolved]
  - Posture abnormal [Recovered/Resolved]
  - Torticollis [Recovered/Resolved]
